FAERS Safety Report 14964872 (Version 1)
Quarter: 2018Q2

REPORT INFORMATION
  Report Type: Spontaneous
  Country: US (occurrence: US)
  Receive Date: 20180511
  Receipt Date: 20180511
  Transmission Date: 20180711
  Serious: Yes (Life-Threatening)
  Sender: FDA-Public Use
  Company Number: None

PATIENT
  Age: 64 Year
  Sex: Male
  Weight: 99.79 kg

DRUGS (1)
  1. PACLITAXEL. [Suspect]
     Active Substance: PACLITAXEL
     Route: 042

REACTIONS (5)
  - Cerebrovascular accident [None]
  - Hemiparesis [None]
  - Intracranial mass [None]
  - Aphasia [None]
  - Facial paralysis [None]

NARRATIVE: CASE EVENT DATE: 20180510
